FAERS Safety Report 9124654 (Version 1)
Quarter: 2013Q1

REPORT INFORMATION
  Report Type: Spontaneous
  Country: IL (occurrence: IL)
  Receive Date: 20130227
  Receipt Date: 20130227
  Transmission Date: 20140127
  Serious: Yes (Other)
  Sender: FDA-Public Use
  Company Number: IL-ROCHE-1196022

PATIENT
  Age: 86 Year
  Sex: Female

DRUGS (2)
  1. ALTEPLASE [Suspect]
     Indication: ANTERIOR CHAMBER DISORDER
     Route: 031
  2. PRED FORTE [Concomitant]
     Indication: ANTERIOR CHAMBER DISORDER
     Route: 065

REACTIONS (1)
  - Keratopathy [Recovering/Resolving]
